FAERS Safety Report 13917291 (Version 1)
Quarter: 2017Q3

REPORT INFORMATION
  Report Type: Spontaneous
  Country: US (occurrence: None)
  Receive Date: 20170827
  Receipt Date: 20170827
  Transmission Date: 20171127
  Serious: No
  Sender: FDA-Public Use
  Company Number: None

PATIENT
  Age: 40 Year
  Sex: Female

DRUGS (1)
  1. IBRANCE [Suspect]
     Active Substance: PALBOCICLIB
     Indication: NEOPLASM MALIGNANT
     Dosage: 75MG DAILY FOR 21 DAYS EVERY 28 DAYS BY MOUTH
     Route: 048
     Dates: start: 20170331

REACTIONS (3)
  - Abdominal discomfort [None]
  - Dyspepsia [None]
  - Nausea [None]

NARRATIVE: CASE EVENT DATE: 20170821
